FAERS Safety Report 19403235 (Version 1)
Quarter: 2021Q2

REPORT INFORMATION
  Report Type: Spontaneous
  Country: DE (occurrence: DE)
  Receive Date: 20210610
  Receipt Date: 20210610
  Transmission Date: 20210717
  Serious: Yes (Other)
  Sender: FDA-Public Use
  Company Number: DE-PFIZER INC-2021617009

PATIENT
  Age: 27 Year
  Sex: Female
  Weight: 79 kg

DRUGS (1)
  1. CYTOTEC [Suspect]
     Active Substance: MISOPROSTOL
     Indication: LABOUR INDUCTION
     Dosage: FREQ:{TOTAL};IN THE MORNING 50?G AT NOON 100?G, IN THE EVENING 50?G
     Route: 048

REACTIONS (4)
  - Arterial injury [Recovered/Resolved]
  - Uterine haemorrhage [Recovered/Resolved]
  - Off label use [Unknown]
  - Uterine rupture [Recovered/Resolved]

NARRATIVE: CASE EVENT DATE: 20210310
